FAERS Safety Report 9876866 (Version 3)
Quarter: 2014Q2

REPORT INFORMATION
  Report Type: Report from Study
  Country: IT (occurrence: IT)
  Receive Date: 20140206
  Receipt Date: 20140530
  Transmission Date: 20141212
  Serious: Yes (Life-Threatening, Hospitalization)
  Sender: FDA-Public Use
  Company Number: IT-ROCHE-1343276

PATIENT
  Age: 73 Year
  Sex: Male
  Weight: 60 kg

DRUGS (16)
  1. OBINUTUZUMAB [Suspect]
     Indication: DIFFUSE LARGE B-CELL LYMPHOMA
     Dosage: LAST DOSE PRIOR TO SAE WAS VOLUME 250 ML, CONCENTRATION 1000 MG/ML ON 22/OCT/2013
     Route: 042
     Dates: start: 20130513
  2. CYCLOPHOSPHAMIDE [Suspect]
     Indication: DIFFUSE LARGE B-CELL LYMPHOMA
     Dosage: LAST DOSE PRIOR TO SAE WAS 1372.5 MG ON 3/SEP/2013
     Route: 042
     Dates: start: 20130514
  3. DOXORUBICIN [Suspect]
     Indication: DIFFUSE LARGE B-CELL LYMPHOMA
     Dosage: LAST DOSE PRIOR TO SAE WAS 91.5 MG , 3/SEP/2013
     Route: 042
     Dates: start: 20130514
  4. VINCRISTINE [Suspect]
     Indication: DIFFUSE LARGE B-CELL LYMPHOMA
     Dosage: LAST DOSE PRIOR TO SAE WAS 1MG ON 13/AUG/2013
     Route: 040
     Dates: start: 20130514
  5. PREDNISONE [Suspect]
     Indication: DIFFUSE LARGE B-CELL LYMPHOMA
     Dosage: LAST DOSE PRIOR TO SAE WAS 100MG ON 7/SEP/2013
     Route: 065
     Dates: start: 20130513
  6. ACYCLOVIR [Concomitant]
     Indication: ANTIVIRAL PROPHYLAXIS
     Route: 065
     Dates: start: 20130703
  7. PARACETAMOL [Concomitant]
     Indication: PREMEDICATION
     Route: 065
     Dates: start: 20130513
  8. CLORFENAMINA [Concomitant]
     Indication: PREMEDICATION
     Route: 065
     Dates: start: 20130513
  9. ONDANSETRON [Concomitant]
     Indication: PROPHYLAXIS OF NAUSEA AND VOMITING
     Route: 065
     Dates: start: 20130513
  10. CO-TRIMOXAZOLE [Concomitant]
     Indication: ANTIFUNGAL PROPHYLAXIS
     Route: 065
     Dates: start: 20130513
  11. ALLOPURINOL [Concomitant]
     Route: 065
     Dates: start: 20130513
  12. OMEPRAZOLE [Concomitant]
     Route: 065
     Dates: start: 20130513
  13. ENOXAPARINA [Concomitant]
     Indication: THROMBOSIS PROPHYLAXIS
  14. EPOETIN ZETA [Concomitant]
     Indication: ANAEMIA
     Route: 065
     Dates: start: 20130625
  15. DEURSIL [Concomitant]
     Route: 065
     Dates: start: 20130702
  16. AMOXICILLIN/CLAVULANIC ACID [Concomitant]
     Indication: PYREXIA
     Route: 065
     Dates: start: 20131030

REACTIONS (1)
  - Cachexia [Recovered/Resolved with Sequelae]
